FAERS Safety Report 13849455 (Version 1)
Quarter: 2017Q3

REPORT INFORMATION
  Report Type: Spontaneous
  Country: US (occurrence: US)
  Receive Date: 20170809
  Receipt Date: 20170809
  Transmission Date: 20171127
  Serious: Yes (Hospitalization, Other)
  Sender: FDA-Public Use
  Company Number: PHEH2017US024087

PATIENT
  Sex: Female

DRUGS (6)
  1. DEPAKOTE [Suspect]
     Active Substance: DIVALPROEX SODIUM
     Indication: BIPOLAR I DISORDER
     Dosage: UNK
     Route: 048
     Dates: start: 2004
  2. LITHIUM. [Concomitant]
     Active Substance: LITHIUM
     Indication: PRODUCT USED FOR UNKNOWN INDICATION
     Dosage: UNK
     Route: 065
  3. TRILEPTAL [Suspect]
     Active Substance: OXCARBAZEPINE
     Indication: PRODUCT USED FOR UNKNOWN INDICATION
     Dosage: UNK
     Route: 065
  4. DEPAKOTE [Suspect]
     Active Substance: DIVALPROEX SODIUM
     Dosage: 1250 MG, UNK
     Route: 048
     Dates: start: 2015
  5. DEPAKOTE [Suspect]
     Active Substance: DIVALPROEX SODIUM
     Dosage: 1000 MG, UNK
     Route: 048
  6. DEPAKOTE [Suspect]
     Active Substance: DIVALPROEX SODIUM
     Dosage: 750 MG TO 1000 MG, UNK
     Route: 048

REACTIONS (11)
  - Fatigue [Unknown]
  - Drug level increased [Unknown]
  - Memory impairment [Unknown]
  - Foot fracture [Unknown]
  - Hyponatraemia [Recovered/Resolved]
  - Inappropriate antidiuretic hormone secretion [Recovered/Resolved]
  - Loss of consciousness [Recovered/Resolved]
  - Hyperammonaemia [Recovered/Resolved]
  - Palpitations [Unknown]
  - Dizziness [Unknown]
  - Gastric disorder [Unknown]

NARRATIVE: CASE EVENT DATE: 201611
